FAERS Safety Report 9136153 (Version 1)
Quarter: 2013Q1

REPORT INFORMATION
  Report Type: Spontaneous
  Country: US (occurrence: US)
  Receive Date: 20130304
  Receipt Date: 20130304
  Transmission Date: 20140127
  Serious: No
  Sender: FDA-Public Use
  Company Number: US-ABBOTT-12P-163-0973808-00

PATIENT
  Sex: Male
  Weight: 95.34 kg

DRUGS (19)
  1. ANDROGEL 1% [Suspect]
     Indication: BLOOD TESTOSTERONE DECREASED
     Dosage: ONCE A DAY-4 PUMP ACTUATIONS PER DAY
     Route: 061
     Dates: start: 2008
  2. FUROSEMIDE [Concomitant]
     Indication: RENAL FAILURE
  3. ZEMPLAR [Concomitant]
     Indication: RENAL DISORDER
     Route: 048
  4. POTASSIUM CHLORIDE [Concomitant]
     Indication: PRODUCT USED FOR UNKNOWN INDICATION
  5. FLOMAX [Concomitant]
     Indication: PROSTATOMEGALY
  6. SYNTHROID [Concomitant]
     Indication: HYPOTHYROIDISM
  7. ADDERALL [Concomitant]
     Indication: NARCOLEPSY
  8. RANITIDINE [Concomitant]
     Indication: HYPERSENSITIVITY
  9. RANITIDINE [Concomitant]
     Indication: PROPHYLAXIS AGAINST GASTROINTESTINAL ULCER
  10. CELEBREX [Concomitant]
     Indication: ARTHRITIS
  11. PROMETHAZINE [Concomitant]
     Indication: NAUSEA
     Dosage: EVERY 8 HOURS, AS REQUIRED
  12. MORPHINE [Concomitant]
     Indication: PAIN
  13. MORPHINE [Concomitant]
     Indication: PAIN
  14. IRON [Concomitant]
     Indication: PRODUCT USED FOR UNKNOWN INDICATION
  15. CO Q 10 [Concomitant]
     Indication: PRODUCT USED FOR UNKNOWN INDICATION
  16. DHEA SUPPLEMENT [Concomitant]
     Indication: PRODUCT USED FOR UNKNOWN INDICATION
  17. SENOKOT [Concomitant]
     Indication: PRODUCT USED FOR UNKNOWN INDICATION
  18. MULTIVITAMIN [Concomitant]
     Indication: PRODUCT USED FOR UNKNOWN INDICATION
  19. ZADITOR [Concomitant]
     Indication: PRODUCT USED FOR UNKNOWN INDICATION

REACTIONS (1)
  - Prostatic specific antigen increased [Unknown]
